FAERS Safety Report 21979883 (Version 2)
Quarter: 2023Q1

REPORT INFORMATION
  Report Type: Spontaneous
  Country: US (occurrence: US)
  Receive Date: 20230210
  Receipt Date: 20230215
  Transmission Date: 20230417
  Serious: Yes (Other)
  Sender: FDA-Public Use
  Company Number: US-PFIZER INC-202300062009

PATIENT
  Age: 69 Year
  Sex: Female

DRUGS (1)
  1. PAXLOVID [Suspect]
     Active Substance: NIRMATRELVIR\RITONAVIR
     Indication: COVID-19 treatment
     Dosage: UNK

REACTIONS (7)
  - Confusional state [Unknown]
  - Disorientation [Unknown]
  - Gait disturbance [Unknown]
  - Fall [Unknown]
  - Skin laceration [Unknown]
  - Abnormal dreams [Unknown]
  - Face injury [Unknown]
